FAERS Safety Report 10461884 (Version 3)
Quarter: 2014Q4

REPORT INFORMATION
  Report Type: Spontaneous
  Country: US (occurrence: US)
  Receive Date: 20140918
  Receipt Date: 20141023
  Transmission Date: 20150528
  Serious: Yes (Hospitalization)
  Sender: FDA-Public Use
  Company Number: US-PURDUE-USA-2014-0111467

PATIENT
  Age: 91 Year
  Sex: Female

DRUGS (5)
  1. COLACE [Suspect]
     Active Substance: DOCUSATE SODIUM
     Indication: FAECES HARD
     Dosage: 200 MG, HS
     Route: 048
     Dates: start: 2012
  2. ASPIRIN. [Concomitant]
     Active Substance: ASPIRIN
     Indication: PRODUCT USED FOR UNKNOWN INDICATION
     Dosage: 325 MG, UNK
     Route: 048
  3. COLACE [Suspect]
     Active Substance: DOCUSATE SODIUM
     Indication: CONSTIPATION
     Dosage: 100 MG, UNK
     Route: 048
  4. COLACE [Suspect]
     Active Substance: DOCUSATE SODIUM
     Dosage: 300 MG, HS
     Route: 048
  5. DILTIAZEM [Concomitant]
     Active Substance: DILTIAZEM
     Indication: PRODUCT USED FOR UNKNOWN INDICATION
     Dosage: 180 MG, UNK

REACTIONS (7)
  - Gallbladder disorder [Unknown]
  - Gastrointestinal hypomotility [Unknown]
  - Flatulence [Not Recovered/Not Resolved]
  - Abdominal pain upper [None]
  - Pyrexia [Recovered/Resolved]
  - Pancreatitis [Unknown]
  - Abdominal pain [Not Recovered/Not Resolved]

NARRATIVE: CASE EVENT DATE: 2013
